FAERS Safety Report 7384069-0 (Version None)
Quarter: 2011Q1

REPORT INFORMATION
  Report Type: 
  Country: None (occurrence: None)
  Receive Date: 20110330
  Receipt Date: 20110324
  Transmission Date: 20110831
  Serious: Yes (Hospitalization)
  Sender: FDA-Public Use
  Company Number: A0772831A

PATIENT
  Age: 73 Year
  Sex: Male
  Weight: 86.4 kg

DRUGS (7)
  1. AVANDIA [Suspect]
     Indication: DIABETES MELLITUS
     Route: 048
     Dates: start: 20050101, end: 20060101
  2. GLYBURIDE [Concomitant]
  3. MULTIVITAMIN [Concomitant]
  4. LISINOPRIL [Concomitant]
  5. AVANDAMET [Suspect]
     Indication: DIABETES MELLITUS
     Route: 048
  6. METOPROLOL [Concomitant]
  7. ZOCOR [Concomitant]

REACTIONS (6)
  - MYOCARDIAL INFARCTION [None]
  - CORONARY ARTERY DISEASE [None]
  - CORONARY ARTERY STENOSIS [None]
  - ACUTE CORONARY SYNDROME [None]
  - CARDIAC DISORDER [None]
  - CARDIOVASCULAR DISORDER [None]
